FAERS Safety Report 7984769-5 (Version None)
Quarter: 2011Q4

REPORT INFORMATION
  Report Type: 
  Country: None (occurrence: None)
  Receive Date: 20111216
  Receipt Date: 20111011
  Transmission Date: 20120403
  Serious: No
  Sender: FDA-Public Use
  Company Number: US-ALLERGAN-1006703US

PATIENT
  Sex: Female

DRUGS (4)
  1. LATISSE [Suspect]
     Indication: GROWTH OF EYELASHES
     Dosage: 1 GTT, QHS
     Route: 061
     Dates: end: 20100501
  2. LASH PRIMER [Concomitant]
  3. IBUPROFEN [Concomitant]
     Indication: PAIN
     Dosage: UNK
  4. LATISSE [Suspect]
     Dosage: 1 GTT, UNK
     Route: 061
     Dates: start: 20110901

REACTIONS (7)
  - LACRIMATION INCREASED [None]
  - OCULAR HYPERAEMIA [None]
  - MADAROSIS [None]
  - BLOOD PRESSURE INCREASED [None]
  - EYELID OEDEMA [None]
  - EYE DISCHARGE [None]
  - DRUG INEFFECTIVE [None]
